FAERS Safety Report 4062994 (Version 3)
Quarter: 2013Q3

REPORT INFORMATION
  Report Type: Spontaneous
  Country: US (occurrence: US)
  Receive Date: 20040105
  Receipt Date: 20130902
  Transmission Date: 20140515
  Serious: Yes (Hospitalization)
  Sender: FDA-Public Use
  Company Number: 189080

PATIENT
  Age: 45 Year
  Sex: Female
  Weight: 82 kg

DRUGS (4)
  1. AVONEX [Suspect]
     Indication: MULTIPLE SCLEROSIS
     Route: 030
     Dates: start: 1996, end: 200310
  2. AVONEX [Suspect]
     Indication: MULTIPLE SCLEROSIS
     Route: 030
     Dates: start: 200310, end: 2009
  3. AVONEX [Suspect]
     Indication: MULTIPLE SCLEROSIS
     Route: 030
     Dates: start: 2010, end: 2010
  4. GLUCOPHAGE [Concomitant]
     Indication: INSULIN RESISTANCE

REACTIONS (8)
  - Endometriosis [Recovered/Resolved]
  - Ovarian cyst [Recovered/Resolved]
  - Wound infection staphylococcal [Recovered/Resolved]
  - Abdominal hernia [Recovered/Resolved]
  - Hypertension [Not Recovered/Not Resolved]
  - Asthma [Recovered/Resolved]
  - Sinusitis [Recovered/Resolved]
  - Nasopharyngitis [Recovered/Resolved]
